FAERS Safety Report 6210832-5 (Version None)
Quarter: 2009Q2

REPORT INFORMATION
  Report Type: 
  Country: None (occurrence: None)
  Receive Date: 20090601
  Receipt Date: 20090525
  Transmission Date: 20091009
  Serious: Yes (Other)
  Sender: FDA-Public Use
  Company Number: PHHY2009BR14480

PATIENT
  Age: 87 Year
  Sex: Male

DRUGS (3)
  1. EXELON [Suspect]
     Dosage: 9MG/5CM2 PATCH
     Route: 062
     Dates: start: 20090327
  2. SPIRONOLACTONE [Concomitant]
  3. SEROQUEL [Concomitant]

REACTIONS (5)
  - ABNORMAL BEHAVIOUR [None]
  - AGGRESSION [None]
  - ANGER [None]
  - DRUG INEFFECTIVE [None]
  - MEMORY IMPAIRMENT [None]
